FAERS Safety Report 7501861-X (Version None)
Quarter: 2011Q2

REPORT INFORMATION
  Report Type: 
  Country: None (occurrence: None)
  Receive Date: 20110523
  Receipt Date: 20110523
  Transmission Date: 20111010
  Serious: No
  Sender: FDA-Public Use
  Company Number: None

PATIENT
  Age: 41 Year
  Sex: Female
  Weight: 56.246 kg

DRUGS (1)
  1. NASAL RELIEF SPRAY ORIGINAL GREENBRIER INTERNATIONAL INC [Suspect]
     Dosage: 3 SPRAY EACH NOSTRIL 1X A DAY NASAL
     Route: 045
     Dates: start: 20110515, end: 20110518

REACTIONS (2)
  - ANOSMIA [None]
  - AGEUSIA [None]
